FAERS Safety Report 7260632-2 (Version None)
Quarter: 2011Q1

REPORT INFORMATION
  Report Type: 
  Country: None (occurrence: None)
  Receive Date: 20110130
  Receipt Date: 20101219
  Transmission Date: 20110831
  Serious: Yes (Other)
  Sender: FDA-Public Use
  Company Number: US-ABBOTT-10P-163-0687108-00

PATIENT
  Age: 48 Year
  Sex: Female

DRUGS (6)
  1. SARAFEM [Concomitant]
     Indication: HORMONE REPLACEMENT THERAPY
  2. HUMIRA [Suspect]
     Dates: start: 20101120
  3. ASACOL [Concomitant]
     Indication: PRODUCT USED FOR UNKNOWN INDICATION
  4. BENTYL [Concomitant]
     Indication: PRODUCT USED FOR UNKNOWN INDICATION
  5. HUMIRA [Suspect]
     Indication: CROHN'S DISEASE
     Dosage: 80 MG ONCE
     Dates: start: 20101119, end: 20101119
  6. PREDNISONE [Concomitant]
     Indication: PRODUCT USED FOR UNKNOWN INDICATION
     Dosage: WEANING OFF

REACTIONS (9)
  - INCORRECT DOSE ADMINISTERED [None]
  - URTICARIA [None]
  - ANKLE FRACTURE [None]
  - NAUSEA [None]
  - HEADACHE [None]
  - DEVICE MALFUNCTION [None]
  - INJECTION SITE PAIN [None]
  - VOMITING [None]
  - FATIGUE [None]
